FAERS Safety Report 24426285 (Version 2)
Quarter: 2024Q4

REPORT INFORMATION
  Report Type: Spontaneous
  Country: IT (occurrence: IT)
  Receive Date: 20241011
  Receipt Date: 20241030
  Transmission Date: 20250114
  Serious: Yes (Hospitalization, Other)
  Sender: RANBAXY
  Company Number: IT-SUN PHARMACEUTICAL INDUSTRIES LTD-2024RR-472657

PATIENT
  Age: 35 Year
  Sex: Female

DRUGS (3)
  1. ESOMEPRAZOLE [Suspect]
     Active Substance: ESOMEPRAZOLE
     Indication: Gastroenteritis
     Dosage: UNK
     Route: 048
     Dates: start: 20240305, end: 20240319
  2. ESOXX ONE [Concomitant]
     Indication: Gastroenteritis
     Dosage: UNK
     Route: 065
  3. lactic ferments [Concomitant]
     Indication: Gastroenteritis
     Dosage: UNK
     Route: 065

REACTIONS (2)
  - Angioedema [Recovered/Resolved]
  - Urticaria [Recovered/Resolved]

NARRATIVE: CASE EVENT DATE: 20240319
